FAERS Safety Report 9982961 (Version 1)
Quarter: 2014Q1

REPORT INFORMATION
  Report Type: Report from Study
  Country: US (occurrence: US)
  Receive Date: 20140307
  Receipt Date: 20140307
  Transmission Date: 20141002
  Serious: No
  Sender: FDA-Public Use
  Company Number: US-ABBVIE-13P-163-1176884-00

PATIENT
  Age: 28 Year
  Sex: Female
  Weight: 77.18 kg

DRUGS (5)
  1. HUMIRA [Suspect]
     Indication: PSORIASIS
     Route: 058
     Dates: start: 20131002, end: 20131002
  2. HUMIRA [Suspect]
     Route: 058
     Dates: start: 20131009, end: 20131106
  3. PRAZOSIN [Concomitant]
     Indication: ANXIETY
  4. PRAZOSIN [Concomitant]
     Indication: PANIC ATTACK
  5. BUTALBITAL, ACETAMINOPHEN AND CAFFEINE [Concomitant]
     Indication: MIGRAINE

REACTIONS (4)
  - Skin exfoliation [Not Recovered/Not Resolved]
  - Pain of skin [Not Recovered/Not Resolved]
  - Psoriasis [Not Recovered/Not Resolved]
  - Erythema [Not Recovered/Not Resolved]
